FAERS Safety Report 12774230 (Version 3)
Quarter: 2016Q4

REPORT INFORMATION
  Report Type: Spontaneous
  Country: US (occurrence: US)
  Receive Date: 20160923
  Receipt Date: 20161227
  Transmission Date: 20170207
  Serious: No
  Sender: FDA-Public Use
  Company Number: US-PFIZER INC-2016188820

PATIENT
  Age: 48 Year
  Sex: Female

DRUGS (22)
  1. TUSSIONEX PENNKINETIC ER [Concomitant]
     Indication: COUGH
     Dosage: UNK, AS NEEDED (TAKE 1 TSP PO EVERY 12 HOURS)
     Route: 048
     Dates: start: 20131115
  2. IBRANCE [Suspect]
     Active Substance: PALBOCICLIB
     Indication: BREAST CANCER STAGE IV
     Dosage: 100 MG, CYCLIC (X 21 DAYS, 1 WK OFF REPEAT)
     Route: 048
     Dates: start: 201602
  3. IBUPROFEN. [Concomitant]
     Active Substance: IBUPROFEN
     Dosage: 800 MG, EVERY 4 HRS
     Route: 048
     Dates: start: 20160108
  4. TESSALON [Concomitant]
     Active Substance: BENZONATATE
     Dosage: 100 MG, AS NEEDED (Q 8HR PRN)
     Dates: start: 20131115
  5. TRAMADOL. [Concomitant]
     Active Substance: TRAMADOL
     Dosage: 50 MG, 3X/DAY
     Route: 048
     Dates: start: 20160119
  6. TYLENOL [Concomitant]
     Active Substance: ACETAMINOPHEN
     Dosage: 325 MG, UNK (Q. 4 TO 6 HOURS)
     Route: 048
     Dates: start: 20150417
  7. VITAMIN D2 [Concomitant]
     Active Substance: ERGOCALCIFEROL
     Dosage: 50000 IU, MONTHLY
     Route: 048
     Dates: start: 20150925
  8. DURAGESIC [Concomitant]
     Active Substance: FENTANYL
     Indication: PAIN
     Dosage: 25 MCG/HR, APPLY 1 PATCH Q 72 HOURS
     Route: 062
     Dates: start: 20160328
  9. HYDROCODONE BITARTRATE AND ACETAMINOPHEN [Concomitant]
     Active Substance: ACETAMINOPHEN\HYDROCODONE BITARTRATE
     Indication: PAIN
     Dosage: 1 DF, AS NEEDED (Q. 4 TO 6 HOURS PRN; HYDROCODONE 10 MG; ACETAMINOPHEN 325 MG)
     Route: 048
     Dates: start: 20150723
  10. XGEVA [Concomitant]
     Active Substance: DENOSUMAB
     Indication: BREAST CANCER FEMALE
     Dosage: 120 MG, Q12 WEEKS
     Dates: start: 20160219
  11. CHERATUSSIN AC [Concomitant]
     Active Substance: CODEINE PHOSPHATE\GUAIFENESIN
     Indication: COUGH
     Dosage: UNK, 2X/DAY (100 MG/5ML)
     Route: 048
     Dates: start: 20150720
  12. LEXAPRO [Concomitant]
     Active Substance: ESCITALOPRAM OXALATE
     Dosage: 10 MG, 1X/DAY
     Route: 048
     Dates: start: 20160226
  13. OXYCODONE [Concomitant]
     Active Substance: OXYCODONE
     Indication: PAIN
     Dosage: 5 MG, AS NEEDED (Q 4-6 HOURS PRN)
     Route: 048
     Dates: start: 20150320
  14. PERCOCET [Concomitant]
     Active Substance: ACETAMINOPHEN\OXYCODONE HYDROCHLORIDE
     Dosage: 1 DF, AS NEEDED (Q 4 PRN)
     Dates: start: 20160108
  15. EFFEXOR XR [Concomitant]
     Active Substance: VENLAFAXINE HYDROCHLORIDE
     Dosage: 37.5 MG, 1X/DAY
     Route: 048
     Dates: start: 20140317
  16. ZOLPIDEM [Concomitant]
     Active Substance: ZOLPIDEM\ZOLPIDEM TARTRATE
     Dosage: 10 MG, AS NEEDED (Q. DAY AT BEDTIME (HS))
     Route: 048
     Dates: start: 20150313
  17. FULVESTRANT [Concomitant]
     Active Substance: FULVESTRANT
     Indication: BREAST CANCER FEMALE
     Dosage: UNK, CYCLIC (500) D1 W/LOADING DOSES THEN Q28D
     Dates: start: 20160307
  18. ALPRAZOLAM. [Concomitant]
     Active Substance: ALPRAZOLAM
     Dosage: 0.25 MG, AS NEEDED (Q. 4 TO 6 HOURS PRN)
     Route: 048
     Dates: start: 20150313
  19. XANAX [Concomitant]
     Active Substance: ALPRAZOLAM
     Dosage: 0.25 MG, AS NEEDED (Q 4HRS)
     Route: 048
     Dates: start: 20131115
  20. FEMARA [Concomitant]
     Active Substance: LETROZOLE
     Indication: BREAST CANCER FEMALE
     Dosage: 2.5 MG, 1X/DAY
     Route: 048
     Dates: start: 20151130
  21. AMBIEN [Concomitant]
     Active Substance: ZOLPIDEM TARTRATE
     Indication: INSOMNIA
     Dosage: 10 MG, AS NEEDED (1/2-1 PO Q HS PRN)
     Route: 048
     Dates: start: 20141223
  22. MOVANTIK [Concomitant]
     Active Substance: NALOXEGOL OXALATE
     Dosage: 25 MG, 1X/DAY
     Route: 048
     Dates: start: 20160119

REACTIONS (5)
  - Malaise [Unknown]
  - Pain in extremity [Not Recovered/Not Resolved]
  - Chills [Unknown]
  - Hyperhidrosis [Unknown]
  - Bone pain [Unknown]
